FAERS Safety Report 8093230-1 (Version None)
Quarter: 2012Q1

REPORT INFORMATION
  Report Type: 
  Country: None (occurrence: None)
  Receive Date: 20120128
  Receipt Date: 20111007
  Transmission Date: 20120608
  Serious: No
  Sender: FDA-Public Use
  Company Number: US-ABBOTT-11P-163-0695125-00

PATIENT
  Sex: Female
  Weight: 68.1 kg

DRUGS (2)
  1. HUMIRA [Suspect]
     Dates: start: 20101101
  2. HUMIRA [Suspect]
     Indication: RHEUMATOID ARTHRITIS
     Dosage: 3 MONTHS
     Dates: start: 20100901, end: 20101001

REACTIONS (18)
  - THERAPY CESSATION [None]
  - DEVICE MALFUNCTION [None]
  - WALKING AID USER [None]
  - ILL-DEFINED DISORDER [None]
  - TREMOR [None]
  - DRUG INEFFECTIVE [None]
  - DRY EYE [None]
  - NODULE [None]
  - ARTHRALGIA [None]
  - BALANCE DISORDER [None]
  - VERTIGO POSITIONAL [None]
  - INTRAOCULAR PRESSURE INCREASED [None]
  - INCORRECT DOSE ADMINISTERED [None]
  - PAIN IN EXTREMITY [None]
  - DYSPNOEA [None]
  - SINUSITIS [None]
  - BRONCHITIS [None]
  - VISUAL ACUITY REDUCED [None]
